FAERS Safety Report 4431469-4 (Version None)
Quarter: 2004Q3

REPORT INFORMATION
  Report Type: 
  Country: None (occurrence: None)
  Receive Date: 20040824
  Receipt Date: 20040419
  Transmission Date: 20050211
  Serious: Yes (Other)
  Sender: FDA-Public Use
  Company Number: JP-BRISTOL-MYERS SQUIBB COMPANY-12564415

PATIENT
  Age: 78 Year
  Sex: Female

DRUGS (5)
  1. HYDREA [Suspect]
     Indication: POLYCYTHAEMIA VERA
     Route: 048
     Dates: end: 20030506
  2. BUFFERIN [Suspect]
     Indication: PLATELET COUNT INCREASED
     Route: 048
     Dates: end: 20030207
  3. 8-HOUR BAYER [Suspect]
     Indication: PLATELET COUNT INCREASED
     Route: 048
     Dates: start: 20030313, end: 20030506
  4. PERDIPINE [Concomitant]
     Route: 048
     Dates: end: 20030312
  5. MUCOSTA [Concomitant]
     Route: 048
     Dates: end: 20030207

REACTIONS (2)
  - HAEMOGLOBIN DECREASED [None]
  - MELAENA [None]
